APPROVED DRUG PRODUCT: ALPHAGAN
Active Ingredient: BRIMONIDINE TARTRATE
Strength: 0.5%
Dosage Form/Route: SOLUTION/DROPS;OPHTHALMIC
Application: N020490 | Product #001
Applicant: ALLERGAN INC
Approved: Mar 13, 1997 | RLD: No | RS: No | Type: DISCN